FAERS Safety Report 9515720 (Version 1)
Quarter: 2013Q3

REPORT INFORMATION
  Report Type: Spontaneous
  Country: US (occurrence: US)
  Receive Date: 20130911
  Receipt Date: 20130911
  Transmission Date: 20140515
  Serious: No
  Sender: FDA-Public Use
  Company Number: US-009507513-1309USA004565

PATIENT
  Sex: Male

DRUGS (1)
  1. COPPERTONE OIL FREE FOAMING LOTION SPF 75+ [Suspect]
     Indication: PROPHYLAXIS
     Dosage: UNK, QH
     Route: 061

REACTIONS (1)
  - Drug ineffective [Unknown]
